FAERS Safety Report 8461671-6 (Version None)
Quarter: 2012Q2

REPORT INFORMATION
  Report Type: 
  Country: None (occurrence: None)
  Receive Date: 20120625
  Receipt Date: 20120620
  Transmission Date: 20120825
  Serious: Yes (Other)
  Sender: FDA-Public Use
  Company Number: PHHY2012JP025566

PATIENT
  Age: 59 Year
  Sex: Female
  Weight: 52 kg

DRUGS (7)
  1. ZOMETA [Suspect]
     Indication: METASTASES TO BONE
     Dosage: 4 MG, PER ADMINISTRATION
     Route: 041
     Dates: start: 20100930, end: 20111226
  2. TAXOTERE [Concomitant]
     Dosage: UNK
     Route: 041
     Dates: end: 20120227
  3. DEXAMETHASONE SODIUM PHOSPHATE [Concomitant]
  4. CYCLOPHOSPHAMIDE [Concomitant]
     Dosage: UNK
     Route: 041
  5. TAXOTERE [Concomitant]
     Dosage: UNK UKN, UNK
  6. ALOXI [Concomitant]
  7. CYCLOPHOSPHAMIDE [Concomitant]
     Dosage: UNK UKN, UNK

REACTIONS (7)
  - SWELLING [None]
  - DENTAL CARIES [None]
  - GINGIVAL ATROPHY [None]
  - SENSORY DISTURBANCE [None]
  - ERYTHEMA [None]
  - OSTEONECROSIS OF JAW [None]
  - EXPOSED BONE IN JAW [None]
